FAERS Safety Report 22030220 (Version 2)
Quarter: 2023Q4

REPORT INFORMATION
  Report Type: Spontaneous
  Country: CL (occurrence: CL)
  Receive Date: 20230223
  Receipt Date: 20231204
  Transmission Date: 20240109
  Serious: Yes (Death, Hospitalization, Other)
  Sender: FDA-Public Use
  Company Number: CL-PFIZER INC-PV202300034221

PATIENT
  Age: 56 Year
  Sex: Female

DRUGS (1)
  1. IBRANCE [Suspect]
     Active Substance: PALBOCICLIB
     Indication: Breast cancer metastatic
     Dosage: UNK

REACTIONS (3)
  - Death [Fatal]
  - Diabetes mellitus [Unknown]
  - Loss of consciousness [Unknown]

NARRATIVE: CASE EVENT DATE: 20230201
